FAERS Safety Report 11837789 (Version 1)
Quarter: 2015Q4

REPORT INFORMATION
  Report Type: Spontaneous
  Country: FR (occurrence: FR)
  Receive Date: 20151215
  Receipt Date: 20151215
  Transmission Date: 20160305
  Serious: Yes (Other)
  Sender: FDA-Public Use
  Company Number: FR-PFIZER INC-2015437413

PATIENT
  Age: 90 Year
  Sex: Male

DRUGS (14)
  1. MIANSERIN [Concomitant]
     Active Substance: MIANSERIN
     Dosage: UNK
  2. FLIXOTIDE [Concomitant]
     Active Substance: FLUTICASONE PROPIONATE
     Dosage: UNK
  3. FORLAX [Concomitant]
     Active Substance: POLYETHYLENE GLYCOL 4000
     Dosage: UNK
  4. VOLTARENE [Concomitant]
     Active Substance: DICLOFENAC SODIUM
     Dosage: UNK
  5. IMOVANE [Concomitant]
     Active Substance: ZOPICLONE
     Dosage: UNK
  6. RAMIPRIL. [Concomitant]
     Active Substance: RAMIPRIL
     Dosage: UNK
  7. GAVISCON [Concomitant]
     Active Substance: ALUMINUM HYDROXIDE\MAGNESIUM CARBONATE
     Dosage: UNK
  8. PLAVIX [Concomitant]
     Active Substance: CLOPIDOGREL BISULFATE
     Dosage: UNK
  9. ECONAZOLE [Concomitant]
     Active Substance: ECONAZOLE
     Dosage: UNK
  10. METFORMIN [Concomitant]
     Active Substance: METFORMIN HYDROCHLORIDE
     Dosage: UNK
  11. DALACINE [Suspect]
     Active Substance: CLINDAMYCIN HYDROCHLORIDE
     Indication: ERYSIPELAS
     Dosage: UNK
     Route: 048
     Dates: start: 20150515, end: 20150523
  12. TAHOR [Concomitant]
     Active Substance: ATORVASTATIN CALCIUM
     Dosage: UNK
  13. FURADANTINE [Concomitant]
     Active Substance: NITROFURANTOIN
     Dosage: UNK
  14. AMLOR [Suspect]
     Active Substance: AMLODIPINE BESYLATE
     Dosage: UNK
     Route: 048
     Dates: start: 20150523

REACTIONS (1)
  - Urticaria [Recovered/Resolved]

NARRATIVE: CASE EVENT DATE: 20150523
